FAERS Safety Report 7357214-0 (Version None)
Quarter: 2011Q1

REPORT INFORMATION
  Report Type: 
  Country: None (occurrence: None)
  Receive Date: 20110308
  Receipt Date: 20110222
  Transmission Date: 20110831
  Serious: Yes (Other)
  Sender: FDA-Public Use
  Company Number: IDA-00503

PATIENT
  Age: 43 Year
  Sex: Female

DRUGS (1)
  1. INDERAL (PROPRANOLOL HYDROCHLORIDE) [Suspect]
     Dosage: ORAL, TABLET
     Route: 048
     Dates: start: 20100101, end: 20100201

REACTIONS (2)
  - DRUG ERUPTION [None]
  - RASH MACULAR [None]
